FAERS Safety Report 7887022 (Version 10)
Quarter: 2013Q1

REPORT INFORMATION
  Report Type: Report from Study
  Country: DE (occurrence: DE)
  Receive Date: 20110406
  Receipt Date: 20130207
  Transmission Date: 20140127
  Serious: Yes (Hospitalization, Other)
  Sender: FDA-Public Use
  Company Number: DE-BRISTOL-MYERS SQUIBB COMPANY-15645229

PATIENT
  Age: 53 Year
  Sex: Female
  Weight: 51 kg

DRUGS (3)
  1. IPILIMUMAB [Suspect]
     Indication: MALIGNANT MELANOMA
     Dosage: VIAL # 221762,3MG/KG
     Route: 042
     Dates: start: 201102, end: 20110315
  2. REMESTAN [Concomitant]
     Dates: start: 20110404
  3. L-THYROXINE [Concomitant]

REACTIONS (8)
  - Iridocyclitis [Recovering/Resolving]
  - Neurosensory hypoacusis [Recovering/Resolving]
  - Bronchitis [Recovered/Resolved]
  - Cough [Recovered/Resolved]
  - Fatigue [Recovered/Resolved]
  - Headache [Recovered/Resolved]
  - Renal failure acute [Unknown]
  - Blindness [Recovering/Resolving]
